FAERS Safety Report 4526179-9 (Version None)
Quarter: 2004Q4

REPORT INFORMATION
  Report Type: 
  Country: None (occurrence: None)
  Receive Date: 20041210
  Receipt Date: 20041125
  Transmission Date: 20050328
  Serious: No
  Sender: FDA-Public Use
  Company Number: 2004-115381-NL

PATIENT
  Age: 52 Year
  Sex: Male

DRUGS (5)
  1. MIRTAZAPINE [Suspect]
     Dosage: 30 MG
     Dates: start: 20031004
  2. PAROXETINE HYDROCHLORIDE [Concomitant]
  3. STARNOC [Concomitant]
  4. ROFECOXIB [Concomitant]
  5. AMFEBUTAMONE HYDROCHLORIDE [Concomitant]

REACTIONS (1)
  - DRUG INEFFECTIVE [None]
